FAERS Safety Report 7405960-2 (Version None)
Quarter: 2011Q2

REPORT INFORMATION
  Report Type: 
  Country: None (occurrence: None)
  Receive Date: 20110411
  Receipt Date: 20110329
  Transmission Date: 20111010
  Serious: Yes (Other)
  Sender: FDA-Public Use
  Company Number: FR-JNJFOC-20101206727

PATIENT
  Sex: Female

DRUGS (7)
  1. TAHOR [Concomitant]
     Indication: CEREBROVASCULAR ACCIDENT
     Route: 065
  2. GELUPRANE [Concomitant]
     Indication: ARTHRALGIA
     Route: 065
  3. ACETAMINOPHEN AND TRAMADOL HCL [Suspect]
     Indication: BACK PAIN
     Route: 048
  4. PRETERAX [Concomitant]
     Indication: HYPERTENSION
     Route: 065
  5. METOPROLOL TARTRATE [Concomitant]
     Indication: CEREBROVASCULAR ACCIDENT
     Route: 065
  6. PRETERAX [Concomitant]
     Indication: CEREBROVASCULAR ACCIDENT
     Route: 065
  7. PLAVIX [Concomitant]
     Route: 065

REACTIONS (5)
  - VERTIGO [None]
  - SKULL FRACTURE [None]
  - LOSS OF CONSCIOUSNESS [None]
  - NAUSEA [None]
  - FALL [None]
